FAERS Safety Report 14355537 (Version 2)
Quarter: 2018Q1

REPORT INFORMATION
  Report Type: Spontaneous
  Country: US (occurrence: US)
  Receive Date: 20180105
  Receipt Date: 20180126
  Transmission Date: 20180509
  Serious: No
  Sender: FDA-Public Use
  Company Number: US-PFIZER INC-2018003818

PATIENT
  Sex: Female

DRUGS (3)
  1. PREDNISOLONE ACETATE. [Suspect]
     Active Substance: PREDNISOLONE ACETATE
     Indication: EYE DISORDER
  2. OFLOXACIN. [Suspect]
     Active Substance: OFLOXACIN
     Indication: EYE DISORDER
     Dosage: UNK
  3. KETOROLAC TROMETHAMINE. [Suspect]
     Active Substance: KETOROLAC TROMETHAMINE
     Indication: EYE DISORDER
     Dosage: UNK

REACTIONS (1)
  - Eye infection [Unknown]
